FAERS Safety Report 16776710 (Version 1)
Quarter: 2019Q4

REPORT INFORMATION
  Report Type: Spontaneous
  Country: US (occurrence: US)
  Receive Date: 20190905
  Receipt Date: 20190905
  Transmission Date: 20200122
  Serious: No
  Sender: FDA-Public Use
  Company Number: None

PATIENT
  Age: 75 Year
  Sex: Female

DRUGS (2)
  1. ERIVEDGE [Suspect]
     Active Substance: VISMODEGIB
     Indication: BASAL CELL CARCINOMA
     Route: 048
     Dates: start: 20190415
  2. ERIVEDGE [Concomitant]
     Active Substance: VISMODEGIB
     Dates: start: 20190415

REACTIONS (3)
  - Therapy cessation [None]
  - Gallbladder polyp [None]
  - Ageusia [None]

NARRATIVE: CASE EVENT DATE: 20190903
